FAERS Safety Report 20758674 (Version 1)
Quarter: 2022Q2

REPORT INFORMATION
  Report Type: Spontaneous
  Country: US (occurrence: US)
  Receive Date: 20220427
  Receipt Date: 20220427
  Transmission Date: 20220721
  Serious: No
  Sender: FDA-Public Use
  Company Number: US-PFIZER INC-202101237998

PATIENT
  Age: 65 Year
  Sex: Female
  Weight: 80.29 kg

DRUGS (3)
  1. BRAFTOVI [Suspect]
     Active Substance: ENCORAFENIB
     Indication: Metastatic malignant melanoma
     Dosage: 6 PILLS
     Dates: start: 202105
  2. BRAFTOVI [Suspect]
     Active Substance: ENCORAFENIB
     Dosage: 3 PILLS, 75MG EACH, 3 TIMES A DAY
     Route: 048
     Dates: end: 20210730
  3. BRAFTOVI [Suspect]
     Active Substance: ENCORAFENIB
     Dosage: 2 PILLS, 75MG EACH, TWICE A DAY
     Dates: start: 20210823

REACTIONS (4)
  - Sunburn [Recovered/Resolved]
  - Back disorder [Recovered/Resolved]
  - Head discomfort [Recovered/Resolved]
  - Off label use [Unknown]

NARRATIVE: CASE EVENT DATE: 20210823
